FAERS Safety Report 13189467 (Version 2)
Quarter: 2017Q1

REPORT INFORMATION
  Report Type: Report from Study
  Country: NL (occurrence: NL)
  Receive Date: 20170206
  Receipt Date: 20170224
  Transmission Date: 20170428
  Serious: Yes (Hospitalization)
  Sender: FDA-Public Use
  Company Number: PHHO2016NL017199

PATIENT
  Age: 66 Year
  Sex: Female
  Weight: 73 kg

DRUGS (9)
  1. BLINDED NO TREATMENT RECEIVED [Suspect]
     Active Substance: INVESTIGATIONAL PRODUCT
     Indication: ASTHMA
     Dosage: CODE NOT BROKEN
     Route: 048
     Dates: start: 20161021
  2. PREDNISOLONE. [Concomitant]
     Active Substance: PREDNISOLONE
     Indication: ASTHMA
     Dosage: 7.5 MG, QD
     Route: 065
     Dates: start: 20160802
  3. MONTELUKAST [Concomitant]
     Active Substance: MONTELUKAST SODIUM
     Indication: ASTHMA
     Dosage: 10 MG, QD
     Route: 065
     Dates: start: 2006
  4. FORMOTEROL [Concomitant]
     Active Substance: FORMOTEROL
     Indication: ASTHMA
     Dosage: 12 UG, BID
     Route: 065
     Dates: start: 201401
  5. CIPROFLOXACINE [Concomitant]
     Active Substance: CIPROFLOXACIN
     Indication: URINARY TRACT INFECTION
     Dosage: 500 MG, BID
     Route: 065
     Dates: start: 20161108
  6. BLINDED QAW039 [Suspect]
     Active Substance: FEVIPIPRANT
     Indication: ASTHMA
     Dosage: CODE NOT BROKEN
     Route: 048
     Dates: start: 20161021
  7. CICLESONIDE [Concomitant]
     Active Substance: CICLESONIDE
     Indication: ASTHMA
     Dosage: 320 UG, BID
     Route: 065
     Dates: start: 201401
  8. BLINDED PLACEBO [Suspect]
     Active Substance: INVESTIGATIONAL PRODUCT
     Indication: ASTHMA
     Dosage: CODE NOT BROKEN
     Route: 048
     Dates: start: 20161021
  9. BECLOMETHASONE [Concomitant]
     Active Substance: BECLOMETHASONE
     Indication: ASTHMA
     Dosage: 200 UG, BID
     Route: 065
     Dates: start: 201401

REACTIONS (2)
  - Pneumonia [Recovered/Resolved]
  - Atelectasis [Recovered/Resolved]

NARRATIVE: CASE EVENT DATE: 20161118
